FAERS Safety Report 5968042-2 (Version None)
Quarter: 2008Q4

REPORT INFORMATION
  Report Type: 
  Country: None (occurrence: None)
  Receive Date: 20081126
  Receipt Date: 20081118
  Transmission Date: 20090506
  Serious: Yes (Other)
  Sender: FDA-Public Use
  Company Number: AU-AMGEN-US320148

PATIENT
  Sex: Female

DRUGS (4)
  1. ENBREL [Suspect]
     Indication: PSORIASIS
     Route: 058
     Dates: start: 20080201, end: 20080901
  2. ATACAND [Concomitant]
     Dosage: UNKNOWN
     Route: 065
  3. CIPRAMIL [Concomitant]
     Indication: DEPRESSION
     Dosage: UNKNOWN
     Route: 065
  4. METHOTREXATE [Concomitant]
     Dosage: UNKNOWN
     Route: 065

REACTIONS (4)
  - LIVER FUNCTION TEST ABNORMAL [None]
  - PANCYTOPENIA [None]
  - SKIN ULCER [None]
  - VULVAL ULCERATION [None]
